FAERS Safety Report 8963248 (Version 1)
Quarter: 2012Q4

REPORT INFORMATION
  Report Type: 
  Country: US (occurrence: US)
  Receive Date: 20121214
  Receipt Date: 20121214
  Transmission Date: 20130627
  Serious: No
  Sender: FDA-Public Use
  Company Number: US-PFIZER INC-2012226857

PATIENT
  Age: 53 Year
  Sex: Female

DRUGS (1)
  1. RAPAMUNE [Suspect]
     Indication: KIDNEY TRANSPLANT
     Dosage: 1 mg, 2x/day
     Dates: start: 20090521

REACTIONS (1)
  - Mouth ulceration [Unknown]
